FAERS Safety Report 19133244 (Version 1)
Quarter: 2021Q2

REPORT INFORMATION
  Report Type: Spontaneous
  Country: US (occurrence: US)
  Receive Date: 20210413
  Receipt Date: 20210413
  Transmission Date: 20210717
  Serious: No
  Sender: FDA-Public Use
  Company Number: None

PATIENT
  Age: 54 Year
  Sex: Female
  Weight: 76.95 kg

DRUGS (1)
  1. HYDROCODONE/ACETAMINOPHEN 10?325 MG TAB MALL GENERIC FOR: NORCO [Suspect]
     Active Substance: ACETAMINOPHEN\HYDROCODONE BITARTRATE
     Indication: PAIN
     Dosage: ?          QUANTITY:1 TABLET(S);?
     Route: 048
     Dates: start: 20080801

REACTIONS (6)
  - Product odour abnormal [None]
  - Product substitution issue [None]
  - Product container issue [None]
  - Product taste abnormal [None]
  - Product use complaint [None]
  - Wrong technique in product usage process [None]

NARRATIVE: CASE EVENT DATE: 20210323
